FAERS Safety Report 8190147-9 (Version None)
Quarter: 2012Q1

REPORT INFORMATION
  Report Type: 
  Country: None (occurrence: None)
  Receive Date: 20120221
  Receipt Date: 20120106
  Transmission Date: 20120608
  Serious: No
  Sender: FDA-Public Use
  Company Number: 1000026767

PATIENT
  Age: 52 Year
  Sex: Female

DRUGS (12)
  1. VIIBRYD [Suspect]
     Indication: DEPRESSION
     Dosage: 10 MG (10 MG, 1 IN 1 D), ORAL
     Route: 048
     Dates: start: 20110401, end: 20110501
  2. TRAZODONE (TRAZODONE) (TRAZODONE) [Concomitant]
  3. BUPROPION (BUPROPION) (BUPROPION) [Concomitant]
  4. LEVOTHYROXINE (LEVOTHYROXINE SODIUM) (LEVOTHYROXINE SODIUM) [Concomitant]
  5. VYVANSE (LISDEXAMFETAMINE MESILATE) (LISDEXAMFETAMINE MESILATE) [Concomitant]
  6. TEMAZEPAM [Concomitant]
  7. XANAX [Concomitant]
  8. CYMBALTA (DULOXETINE HYDROCHLORIDE) (DULOXETINE HYDROCHLORIDE) [Concomitant]
  9. LISINOPRIL [Concomitant]
  10. GEODON (ZIPRASIDONE) (ZIPRASIDONE) [Concomitant]
  11. LITHIUM CARBONATE [Concomitant]
  12. MELOXICAM [Concomitant]

REACTIONS (1)
  - MICTURITION URGENCY [None]
